FAERS Safety Report 20687951 (Version 2)
Quarter: 2022Q2

REPORT INFORMATION
  Report Type: Spontaneous
  Country: US (occurrence: US)
  Receive Date: 20220408
  Receipt Date: 20220509
  Transmission Date: 20220721
  Serious: Yes (Other)
  Sender: FDA-Public Use
  Company Number: US-ALIMERA SCIENCES INC.-US-A16013-22-000008

PATIENT

DRUGS (1)
  1. ILUVIEN [Suspect]
     Active Substance: FLUOCINOLONE ACETONIDE
     Indication: Diabetic retinal oedema
     Dosage: 0.25 MICROGRAM, QD - UNKNOWN EYE
     Route: 031
     Dates: start: 20180726

REACTIONS (2)
  - Glaucoma drainage device placement [Recovered/Resolved]
  - Glaucoma [Unknown]

NARRATIVE: CASE EVENT DATE: 20190129
